FAERS Safety Report 7959561-8 (Version None)
Quarter: 2011Q4

REPORT INFORMATION
  Report Type: 
  Country: None (occurrence: None)
  Receive Date: 20111206
  Receipt Date: 20110923
  Transmission Date: 20120403
  Serious: Yes (Death, Hospitalization)
  Sender: FDA-Public Use
  Company Number: FR-ROCHE-1011253

PATIENT
  Sex: Male

DRUGS (3)
  1. HERCEPTIN [Suspect]
     Route: 042
     Dates: start: 20110708
  2. HERCEPTIN [Suspect]
     Indication: ACUTE LYMPHOCYTIC LEUKAEMIA
     Route: 042
     Dates: start: 20110701
  3. HERCEPTIN [Suspect]
     Route: 042
     Dates: start: 20110715

REACTIONS (3)
  - DISEASE PROGRESSION [None]
  - ANGINA PECTORIS [None]
  - HYPERTENSION [None]
